FAERS Safety Report 5249543-1 (Version None)
Quarter: 2007Q1

REPORT INFORMATION
  Report Type: 
  Country: None (occurrence: None)
  Receive Date: 20070228
  Receipt Date: 20060207
  Transmission Date: 20070707
  Serious: No
  Sender: FDA-Public Use
  Company Number: US-GLAXOSMITHKLINE-A0592557A

PATIENT
  Age: 60 Year
  Sex: Female

DRUGS (3)
  1. IMITREX [Suspect]
     Indication: MIGRAINE
     Dosage: 1INJ AS REQUIRED
     Route: 058
     Dates: start: 19930101
  2. IMITREX [Suspect]
     Dosage: 1SPR AS REQUIRED
     Route: 045
  3. IMITREX [Suspect]
     Dosage: 25MG AS REQUIRED
     Route: 048
     Dates: start: 19970101

REACTIONS (11)
  - CHEST DISCOMFORT [None]
  - DRUG INEFFECTIVE [None]
  - FATIGUE [None]
  - FEELING ABNORMAL [None]
  - ILL-DEFINED DISORDER [None]
  - INJECTION SITE PAIN [None]
  - INJECTION SITE SWELLING [None]
  - MIGRAINE [None]
  - NAUSEA [None]
  - SENSORY DISTURBANCE [None]
  - VOMITING [None]
